FAERS Safety Report 24994587 (Version 1)
Quarter: 2025Q1

REPORT INFORMATION
  Report Type: Spontaneous
  Country: US (occurrence: None)
  Receive Date: 20250220
  Receipt Date: 20250220
  Transmission Date: 20250408
  Serious: Yes (Life-Threatening)
  Sender: FDA-CTU
  Company Number: None

PATIENT
  Age: 71 Year
  Sex: Male

DRUGS (1)
  1. IODIXANOL [Suspect]
     Active Substance: IODIXANOL
     Indication: Transient ischaemic attack
     Dates: end: 20241121

REACTIONS (7)
  - Bradycardia [None]
  - Hyperhidrosis [None]
  - Hypotension [None]
  - Rash erythematous [None]
  - Contrast media reaction [None]
  - Acute myocardial infarction [None]
  - Presyncope [None]

NARRATIVE: CASE EVENT DATE: 20241121
